FAERS Safety Report 7276057-X (Version None)
Quarter: 2011Q1

REPORT INFORMATION
  Report Type: 
  Country: None (occurrence: None)
  Receive Date: 20110204
  Receipt Date: 20110201
  Transmission Date: 20110831
  Serious: Yes (Life-Threatening, Hospitalization)
  Sender: FDA-Public Use
  Company Number: Z0004617A

PATIENT
  Sex: Male
  Weight: 74 kg

DRUGS (4)
  1. CHLORAMBUCIL [Suspect]
     Route: 048
  2. DUTASTERIDE [Concomitant]
     Indication: BENIGN PROSTATIC HYPERPLASIA
     Dosage: .5MG PER DAY
     Route: 048
  3. SOTALOL HCL [Concomitant]
     Dosage: 40MG TWICE PER DAY
     Route: 048
  4. OFATUMUMAB [Suspect]
     Route: 042
     Dates: start: 20100519

REACTIONS (3)
  - PULMONARY OEDEMA [None]
  - CHILLS [None]
  - RESPIRATORY FAILURE [None]
